FAERS Safety Report 5529896-7 (Version None)
Quarter: 2007Q4

REPORT INFORMATION
  Report Type: 
  Country: None (occurrence: None)
  Receive Date: 20071129
  Receipt Date: 20071031
  Transmission Date: 20080405
  Serious: Yes (Hospitalization)
  Sender: FDA-Public Use
  Company Number: US-BOEHRINGER INGELHEIM PHARMACEUTICALS, INC.-2007-BP-25154BP

PATIENT

DRUGS (2)
  1. MIRAPEX [Suspect]
  2. OXYCONTIN [Concomitant]
     Indication: RESTLESS LEGS SYNDROME

REACTIONS (2)
  - PATHOLOGICAL GAMBLING [None]
  - SUICIDAL IDEATION [None]
